FAERS Safety Report 23172772 (Version 1)
Quarter: 2023Q4

REPORT INFORMATION
  Report Type: Spontaneous
  Country: CN (occurrence: CN)
  Receive Date: 20231110
  Receipt Date: 20231110
  Transmission Date: 20240110
  Serious: Yes (Hospitalization, Other)
  Sender: FDA-Public Use
  Company Number: CN-PFIZER INC-PV202300181556

PATIENT
  Age: 5 Year
  Sex: Female
  Weight: 17.5 kg

DRUGS (3)
  1. SIROLIMUS [Suspect]
     Active Substance: SIROLIMUS
     Indication: Pelvic mass
     Dosage: 1.7 MG, 1X/DAY
     Route: 048
     Dates: start: 20231010, end: 20231010
  2. EPIRUBICIN HYDROCHLORIDE [Suspect]
     Active Substance: EPIRUBICIN HYDROCHLORIDE
     Indication: Pelvic mass
     Dosage: 25 MG, 1X/DAY
     Route: 041
     Dates: start: 20231010, end: 20231011
  3. CYCLOPHOSPHAMIDE [Suspect]
     Active Substance: CYCLOPHOSPHAMIDE
     Indication: Pelvic mass
     Dosage: 0.288 G, 1X/DAY
     Route: 041
     Dates: start: 20231010, end: 20231013

REACTIONS (1)
  - Myelosuppression [Recovering/Resolving]

NARRATIVE: CASE EVENT DATE: 20231020
